FAERS Safety Report 18872783 (Version 1)
Quarter: 2021Q1

REPORT INFORMATION
  Report Type: Spontaneous
  Country: ES (occurrence: ES)
  Receive Date: 20210210
  Receipt Date: 20210210
  Transmission Date: 20210420
  Serious: Yes (Other)
  Sender: FDA-Public Use
  Company Number: ES-MYLANLABS-2012SP002831

PATIENT
  Age: 31 Year
  Sex: Female

DRUGS (13)
  1. DIAZEPAM. [Concomitant]
     Active Substance: DIAZEPAM
     Indication: BEHAVIOUR DISORDER
     Dosage: 10 MILLIGRAM, QD
     Route: 065
  2. QUETIAPINE. [Interacting]
     Active Substance: QUETIAPINE
     Dosage: 300 MILLIGRAM, QD
     Route: 065
     Dates: start: 20110921
  3. IBUPROFEN. [Concomitant]
     Active Substance: IBUPROFEN
     Indication: INFLAMMATION
     Dosage: 600 MILLIGRAM, Q8H
     Route: 065
  4. HALOPERIDOL. [Suspect]
     Active Substance: HALOPERIDOL
     Indication: PRODUCT USED FOR UNKNOWN INDICATION
     Dosage: UNK
     Route: 065
  5. CLONAZEPAM. [Concomitant]
     Active Substance: CLONAZEPAM
     Indication: BEHAVIOUR DISORDER
     Dosage: 0.5 MILLIGRAM, QD
     Route: 065
  6. OMEPRAZOLE. [Concomitant]
     Active Substance: OMEPRAZOLE
     Indication: PRODUCT USED FOR UNKNOWN INDICATION
     Dosage: 20 MILLIGRAM, QD
     Route: 065
  7. ACETAMINOPHEN. [Concomitant]
     Active Substance: ACETAMINOPHEN
     Indication: INFLAMMATION
     Dosage: 1 GRAM, Q8H
  8. METRONIDAZOLE. [Suspect]
     Active Substance: METRONIDAZOLE
     Indication: ECZEMA
     Dosage: 250 MILLIGRAM, BID
     Route: 065
  9. QUETIAPINE. [Interacting]
     Active Substance: QUETIAPINE
     Indication: BEHAVIOUR DISORDER
     Dosage: 25 MILLIGRAM, QD
     Route: 065
  10. QUETIAPINE. [Interacting]
     Active Substance: QUETIAPINE
     Dosage: 100 MILLIGRAM, QD
     Route: 065
     Dates: start: 20110905
  11. SERTRALINE [Concomitant]
     Active Substance: SERTRALINE HYDROCHLORIDE
     Indication: BEHAVIOUR DISORDER
     Dosage: 25 MILLIGRAM, QD
     Route: 065
  12. OLANZAPINE. [Suspect]
     Active Substance: OLANZAPINE
     Indication: PRODUCT USED FOR UNKNOWN INDICATION
     Dosage: UNK
     Route: 065
  13. AMOXICILLIN CLAVULANIC ACID [Concomitant]
     Active Substance: AMOXICILLIN\CLAVULANIC ACID
     Indication: URINARY TRACT INFECTION
     Dosage: UNK
     Route: 065

REACTIONS (4)
  - Sedation [Unknown]
  - Drug interaction [Recovered/Resolved]
  - Parkinsonism [Recovered/Resolved]
  - Extrapyramidal disorder [Recovered/Resolved]
